FAERS Safety Report 18620622 (Version 1)
Quarter: 2020Q4

REPORT INFORMATION
  Report Type: Spontaneous
  Country: ES (occurrence: ES)
  Receive Date: 20201215
  Receipt Date: 20201215
  Transmission Date: 20210114
  Serious: Yes (Hospitalization)
  Sender: FDA-Public Use
  Company Number: ES-PFIZER INC-6841

PATIENT
  Age: 23 Year
  Sex: Female

DRUGS (1)
  1. PHENYTOIN SODIUM. [Suspect]
     Active Substance: PHENYTOIN SODIUM
     Indication: GENERALISED TONIC-CLONIC SEIZURE
     Dosage: 300 MG, 1X/DAY
     Route: 065

REACTIONS (9)
  - Ataxia [Unknown]
  - Overdose [Unknown]
  - Headache [Unknown]
  - Hyperreflexia [Unknown]
  - Neurotoxicity [Unknown]
  - Nystagmus [Unknown]
  - Toxicity to various agents [Recovered/Resolved]
  - Tremor [Unknown]
  - Vomiting [Unknown]
